FAERS Safety Report 6484677-5 (Version None)
Quarter: 2009Q4

REPORT INFORMATION
  Report Type: 
  Country: None (occurrence: None)
  Receive Date: 20091209
  Receipt Date: 20091127
  Transmission Date: 20100525
  Serious: Yes (Death)
  Sender: FDA-Public Use
  Company Number: FR-PFIZER INC-2009303564

PATIENT
  Age: 9 Year
  Sex: Male

DRUGS (2)
  1. GENOTONORM [Suspect]
     Dosage: 0.5 MG, 1X/DAY
     Dates: start: 20030929, end: 20040930
  2. LEVOTHYROXINE SODIUM [Concomitant]
     Dosage: 25 UG, 1X/DAY

REACTIONS (1)
  - MEDULLOBLASTOMA RECURRENT [None]
